FAERS Safety Report 8943392 (Version 2)
Quarter: 2013Q1

REPORT INFORMATION
  Report Type: Spontaneous
  Country: DE (occurrence: DE)
  Receive Date: 20121204
  Receipt Date: 20130110
  Transmission Date: 20140127
  Serious: Yes (Other)
  Sender: FDA-Public Use
  Company Number: DE-PFIZER INC-2012260476

PATIENT
  Age: 68 Year
  Sex: Male
  Weight: 79 kg

DRUGS (2)
  1. SORTIS [Suspect]
     Indication: HYPERCHOLESTEROLAEMIA
     Dosage: 20 MG, DAILY
     Route: 048
     Dates: start: 201007
  2. BLOPRESS [Suspect]
     Indication: HYPERTENSION
     Dosage: 1 DF, 2X/DAY
     Route: 048
     Dates: start: 2005

REACTIONS (5)
  - Tendon rupture [Recovered/Resolved]
  - Tendon pain [Not Recovered/Not Resolved]
  - Blood creatine phosphokinase increased [Not Recovered/Not Resolved]
  - Tendonitis [Unknown]
  - Lipids increased [Unknown]
